FAERS Safety Report 9266309 (Version 5)
Quarter: 2013Q4

REPORT INFORMATION
  Report Type: Spontaneous
  Country: US (occurrence: US)
  Receive Date: 20130502
  Receipt Date: 20131008
  Transmission Date: 20140711
  Serious: Yes (Hospitalization, Congenital Anomaly, Other)
  Sender: FDA-Public Use
  Company Number: US-JNJFOC-20130416604

PATIENT
  Age: 0 Day
  Sex: Female

DRUGS (1)
  1. TOPOMAX [Suspect]
     Indication: FOETAL EXPOSURE DURING PREGNANCY
     Route: 064

REACTIONS (4)
  - Cleft palate [Recovering/Resolving]
  - Respiratory failure [Recovered/Resolved]
  - Premature baby [Unknown]
  - Otitis media [Unknown]
